FAERS Safety Report 7184319-X (Version None)
Quarter: 2010Q4

REPORT INFORMATION
  Report Type: 
  Country: None (occurrence: None)
  Receive Date: 20101222
  Receipt Date: 20100521
  Transmission Date: 20110411
  Serious: No
  Sender: FDA-Public Use
  Company Number: US-AMGEN-KDL413873

PATIENT

DRUGS (7)
  1. ENBREL [Suspect]
     Indication: PRODUCT USED FOR UNKNOWN INDICATION
     Dosage: 50 MG, QWK
     Route: 058
  2. PREDNISONE [Concomitant]
     Dosage: 10 MG, UNK
  3. METHOTREXATE [Concomitant]
     Dosage: 2.5 MG, UNK
  4. DIPHENHYDRAMINE HYDROCHLORIDE [Concomitant]
     Dosage: 25 MG, UNK
  5. ASCORBIC ACID [Concomitant]
     Dosage: 1000 MG, UNK
  6. ERGOCALCIFEROL [Concomitant]
     Dosage: 400 IU, UNK
  7. IRON [Concomitant]
     Dosage: 325 MG, UNK

REACTIONS (2)
  - INFLUENZA LIKE ILLNESS [None]
  - INJECTION SITE REACTION [None]
